FAERS Safety Report 7291504-5 (Version None)
Quarter: 2011Q1

REPORT INFORMATION
  Report Type: 
  Country: None (occurrence: None)
  Receive Date: 20110202
  Receipt Date: 20110119
  Transmission Date: 20110831
  Serious: Yes (Hospitalization)
  Sender: FDA-Public Use
  Company Number: MC201000152

PATIENT
  Age: 81 Year
  Sex: Female
  Weight: 55 kg

DRUGS (6)
  1. RISPERDAL [Suspect]
     Indication: AGGRESSION
     Dosage: 1 MG, ORAL
     Route: 048
     Dates: start: 20100509, end: 20100510
  2. RISPERDAL [Suspect]
     Indication: MANIA
     Dosage: 1 MG, ORAL
     Route: 048
     Dates: start: 20100509, end: 20100510
  3. ANGIOMAX [Suspect]
     Indication: PERCUTANEOUS CORONARY INTERVENTION
     Dosage: 8.3 ML, BOLUS, INTRAVENOUS; 19.3 ML, INTRAVENOUS
     Dates: start: 20100507, end: 20100507
  4. HEPARIN [Concomitant]
  5. CLOPIDOGREL [Concomitant]
  6. ASPIRIN [Concomitant]

REACTIONS (1)
  - MALLORY-WEISS SYNDROME [None]
